FAERS Safety Report 17110895 (Version 1)
Quarter: 2019Q4

REPORT INFORMATION
  Report Type: Spontaneous
  Country: US (occurrence: US)
  Receive Date: 20191109
  Receipt Date: 20191109
  Transmission Date: 20200122
  Serious: No
  Sender: FDA-Public Use
  Company Number: None

PATIENT
  Age: 67 Year
  Sex: Female

DRUGS (1)
  1. SUTENT [Suspect]
     Active Substance: SUNITINIB MALATE
     Route: 048
     Dates: start: 201709

REACTIONS (4)
  - Faeces soft [None]
  - Tooth fracture [None]
  - Defaecation urgency [None]
  - Peripheral swelling [None]

NARRATIVE: CASE EVENT DATE: 20191109
